FAERS Safety Report 13708632 (Version 1)
Quarter: 2017Q2

REPORT INFORMATION
  Report Type: Report from Study
  Country: US (occurrence: US)
  Receive Date: 20170630
  Receipt Date: 20170630
  Transmission Date: 20170830
  Serious: No
  Sender: FDA-Public Use
  Company Number: US-IPSEN BIOPHARMACEUTICALS, INC.-2015-08292

PATIENT
  Sex: Female

DRUGS (2)
  1. SOMATULINE DEPOT [Suspect]
     Active Substance: LANREOTIDE ACETATE
     Indication: PRODUCT USE IN UNAPPROVED INDICATION
  2. SOMATULINE DEPOT [Suspect]
     Active Substance: LANREOTIDE ACETATE
     Indication: NEOPLASM
     Dosage: 120 MG
     Route: 058

REACTIONS (2)
  - Injection site pain [Recovered/Resolved]
  - Diarrhoea [Not Recovered/Not Resolved]
